FAERS Safety Report 7925792 (Version 2)
Quarter: 2013Q2

REPORT INFORMATION
  Report Type: Spontaneous
  Country: US (occurrence: US)
  Receive Date: 20110502
  Receipt Date: 20130620
  Transmission Date: 20140414
  Serious: No
  Sender: FDA-Public Use
  Company Number: US-ASTRAZENECA-2010SE44681

PATIENT
  Sex: Female

DRUGS (26)
  1. NEXIUM [Suspect]
     Indication: HIATUS HERNIA
     Route: 048
     Dates: start: 2007
  2. NEXIUM [Suspect]
     Indication: OESOPHAGEAL PAIN
     Route: 048
     Dates: start: 2007
  3. NEXIUM [Suspect]
     Indication: BURNING SENSATION
     Route: 048
     Dates: start: 2007
  4. NEXIUM [Suspect]
     Indication: NAUSEA
     Route: 048
     Dates: start: 2007
  5. NEXIUM [Suspect]
     Indication: GASTROOESOPHAGEAL REFLUX DISEASE
     Route: 048
     Dates: start: 2007
  6. NEXIUM [Suspect]
     Indication: HIATUS HERNIA
     Route: 048
  7. NEXIUM [Suspect]
     Indication: OESOPHAGEAL PAIN
     Route: 048
  8. NEXIUM [Suspect]
     Indication: BURNING SENSATION
     Route: 048
  9. NEXIUM [Suspect]
     Indication: NAUSEA
     Route: 048
  10. NEXIUM [Suspect]
     Indication: GASTROOESOPHAGEAL REFLUX DISEASE
     Route: 048
  11. NEXIUM [Suspect]
     Indication: HIATUS HERNIA
     Dosage: TAKING NEXIUM 40 MG FOR 2 DAYS AND THEN TAKING ZANTAC
     Route: 048
  12. NEXIUM [Suspect]
     Indication: OESOPHAGEAL PAIN
     Dosage: TAKING NEXIUM 40 MG FOR 2 DAYS AND THEN TAKING ZANTAC
     Route: 048
  13. NEXIUM [Suspect]
     Indication: BURNING SENSATION
     Dosage: TAKING NEXIUM 40 MG FOR 2 DAYS AND THEN TAKING ZANTAC
     Route: 048
  14. NEXIUM [Suspect]
     Indication: NAUSEA
     Dosage: TAKING NEXIUM 40 MG FOR 2 DAYS AND THEN TAKING ZANTAC
     Route: 048
  15. NEXIUM [Suspect]
     Indication: GASTROOESOPHAGEAL REFLUX DISEASE
     Dosage: TAKING NEXIUM 40 MG FOR 2 DAYS AND THEN TAKING ZANTAC
     Route: 048
  16. NEXIUM [Suspect]
     Indication: HIATUS HERNIA
     Route: 048
  17. NEXIUM [Suspect]
     Indication: OESOPHAGEAL PAIN
     Route: 048
  18. NEXIUM [Suspect]
     Indication: BURNING SENSATION
     Route: 048
  19. NEXIUM [Suspect]
     Indication: NAUSEA
     Route: 048
  20. NEXIUM [Suspect]
     Indication: GASTROOESOPHAGEAL REFLUX DISEASE
     Route: 048
  21. NEXIUM [Suspect]
     Indication: HIATUS HERNIA
     Route: 048
  22. NEXIUM [Suspect]
     Indication: OESOPHAGEAL PAIN
     Route: 048
  23. NEXIUM [Suspect]
     Indication: BURNING SENSATION
     Route: 048
  24. NEXIUM [Suspect]
     Indication: NAUSEA
     Route: 048
  25. NEXIUM [Suspect]
     Indication: GASTROOESOPHAGEAL REFLUX DISEASE
     Route: 048
  26. ZANTAC [Concomitant]
     Route: 065

REACTIONS (5)
  - Burning sensation [Unknown]
  - Gastrooesophageal reflux disease [Unknown]
  - Eructation [Unknown]
  - Drug dose omission [Unknown]
  - Intentional drug misuse [Unknown]
